FAERS Safety Report 24928400 (Version 1)
Quarter: 2025Q1

REPORT INFORMATION
  Report Type: Spontaneous
  Country: US (occurrence: US)
  Receive Date: 20250205
  Receipt Date: 20250205
  Transmission Date: 20250408
  Serious: No
  Sender: BAXTER
  Company Number: US-BAXTER-2025BAX011038

PATIENT

DRUGS (3)
  1. INSULIN NOS [Suspect]
     Active Substance: INSULIN NOS
     Indication: Blood glucose decreased
     Route: 041
  2. DEXTROSE [Suspect]
     Active Substance: DEXTROSE MONOHYDRATE
     Indication: Blood glucose decreased
     Route: 041
  3. SODIUM CHLORIDE [Suspect]
     Active Substance: SODIUM CHLORIDE
     Route: 041

REACTIONS (3)
  - Drug ineffective [Unknown]
  - Device leakage [Unknown]
  - Device connection issue [Unknown]

NARRATIVE: CASE EVENT DATE: 20240924
